FAERS Safety Report 15160096 (Version 1)
Quarter: 2018Q3

REPORT INFORMATION
  Report Type: Spontaneous
  Country: HR (occurrence: HR)
  Receive Date: 20180718
  Receipt Date: 20180718
  Transmission Date: 20181010
  Serious: Yes (Other)
  Sender: FDA-Public Use
  Company Number: HR-JNJFOC-20180717714

PATIENT
  Age: 54 Year
  Sex: Female
  Weight: 80 kg

DRUGS (1)
  1. SIMPONI [Suspect]
     Active Substance: GOLIMUMAB
     Indication: RHEUMATOID ARTHRITIS
     Route: 058
     Dates: start: 20120525

REACTIONS (4)
  - Atypical pneumonia [Recovered/Resolved]
  - Product use issue [Unknown]
  - Off label use [Unknown]
  - Interferon gamma release assay positive [Unknown]

NARRATIVE: CASE EVENT DATE: 20120525
